FAERS Safety Report 6393731-8 (Version None)
Quarter: 2009Q4

REPORT INFORMATION
  Report Type: 
  Country: None (occurrence: None)
  Receive Date: 20091007
  Receipt Date: 20090831
  Transmission Date: 20100525
  Serious: No
  Sender: FDA-Public Use
  Company Number: DL2009544

PATIENT
  Age: 43 Year
  Sex: Female

DRUGS (4)
  1. MIFEPRISTONE TABLETS, 200 MG (DANCO LABS) [Suspect]
     Indication: ABORTION INDUCED
     Dosage: 200 MG, ORAL
     Route: 048
     Dates: start: 20090728
  2. MISOPROSTOL [Suspect]
     Dosage: 800 MCG, BUCCAL
     Route: 002
     Dates: start: 20090729
  3. MISOPROSTOL [Suspect]
     Dosage: 800 MCG RECTALLY
     Route: 054
     Dates: start: 20090805
  4. DOXYCYCLINE [Concomitant]

REACTIONS (2)
  - HAEMORRHAGE [None]
  - PAIN [None]
